FAERS Safety Report 5631790-8 (Version None)
Quarter: 2008Q1

REPORT INFORMATION
  Report Type: 
  Country: None (occurrence: None)
  Receive Date: 20080220
  Receipt Date: 20080213
  Transmission Date: 20080703
  Serious: Yes (Hospitalization, Other)
  Sender: FDA-Public Use
  Company Number: PHNR2008AU00479

PATIENT
  Age: 33 Year
  Sex: Female

DRUGS (3)
  1. SYNTOCINON [Suspect]
     Dosage: 10 IU
     Route: 042
     Dates: start: 20080108
  2. EPHEDRINE SUL CAP [Concomitant]
     Dates: start: 20080108, end: 20080108
  3. CEPHALEXIN [Concomitant]
     Dosage: 1 GM STAT
     Dates: start: 20080108, end: 20080108

REACTIONS (4)
  - DRUG INEFFECTIVE [None]
  - HAEMOGLOBIN DECREASED [None]
  - PHARMACEUTICAL PRODUCT COMPLAINT [None]
  - POSTPARTUM HAEMORRHAGE [None]
